FAERS Safety Report 13404094 (Version 2)
Quarter: 2017Q2

REPORT INFORMATION
  Report Type: Spontaneous
  Country: US (occurrence: US)
  Receive Date: 20170405
  Receipt Date: 20170502
  Transmission Date: 20170830
  Serious: Yes (Life-Threatening, Hospitalization, Other)
  Sender: FDA-Public Use
  Company Number: US-ASTRAZENECA-2017SE34577

PATIENT
  Age: 5 Month
  Sex: Male
  Weight: 7.5 kg

DRUGS (6)
  1. LASIX [Concomitant]
     Active Substance: FUROSEMIDE
     Indication: CARDIAC FAILURE
     Route: 048
     Dates: start: 20161006
  2. SYNAGIS [Suspect]
     Active Substance: PALIVIZUMAB
     Indication: VENTRICULAR SEPTAL DEFECT
     Route: 030
     Dates: start: 20161107
  3. SYNAGIS [Suspect]
     Active Substance: PALIVIZUMAB
     Indication: VENTRICULAR SEPTAL DEFECT
     Dosage: 100 MG/ML
     Route: 030
     Dates: start: 20161205
  4. SYNAGIS [Suspect]
     Active Substance: PALIVIZUMAB
     Indication: VENTRICULAR SEPTAL DEFECT
     Dosage: 100 MG/ML
     Route: 030
     Dates: start: 20170103
  5. SYNAGIS [Suspect]
     Active Substance: PALIVIZUMAB
     Indication: VENTRICULAR SEPTAL DEFECT
     Dosage: 100 MG/ML
     Route: 030
     Dates: start: 20170309, end: 20170418
  6. VITAMIN D [Concomitant]
     Active Substance: CHOLECALCIFEROL
     Indication: SUPPLEMENTATION THERAPY
     Route: 048

REACTIONS (6)
  - Rhinovirus infection [Unknown]
  - Viral infection [Unknown]
  - Pneumonia [Unknown]
  - Failure to thrive [Unknown]
  - Drug dose omission [Unknown]
  - Apparent life threatening event [Unknown]

NARRATIVE: CASE EVENT DATE: 201702
